FAERS Safety Report 9206561 (Version 1)
Quarter: 2013Q2

REPORT INFORMATION
  Report Type: Spontaneous
  Country: JP (occurrence: JP)
  Receive Date: 20130403
  Receipt Date: 20130403
  Transmission Date: 20140414
  Serious: Yes (Other)
  Sender: FDA-Public Use
  Company Number: JP-ASTELLAS-2013JP004432

PATIENT
  Age: 46 Year
  Sex: Female

DRUGS (2)
  1. PROGRAF [Suspect]
     Indication: IMMUNOSUPPRESSANT DRUG THERAPY
     Route: 065
  2. CORTICOSTEROID NOS [Concomitant]
     Route: 065

REACTIONS (4)
  - Drug ineffective [Unknown]
  - Graft versus host disease in skin [Unknown]
  - Graft versus host disease in intestine [Unknown]
  - Thrombotic microangiopathy [Unknown]
